FAERS Safety Report 22007692 (Version 14)
Quarter: 2024Q3

REPORT INFORMATION
  Report Type: Spontaneous
  Country: CA (occurrence: CA)
  Receive Date: 20230218
  Receipt Date: 20240829
  Transmission Date: 20241016
  Serious: Yes (Other)
  Sender: CELLTRION
  Company Number: CA-CELLTRION INC.-2022CA018934

PATIENT

DRUGS (17)
  1. INFLECTRA [Suspect]
     Active Substance: INFLIXIMAB-DYYB
     Indication: Crohn^s disease
     Dosage: 5 MG/KG, INDUCTION W0, 2, 6 THEN MAINTENANCE EVERY 8 WEEKS
     Route: 042
     Dates: start: 20221018
  2. INFLECTRA [Suspect]
     Active Substance: INFLIXIMAB-DYYB
     Dosage: 5 MG/KG, INDUCTION W0, 2, 6 THEN MAINTENANCE EVERY 8 WEEKS
     Route: 042
     Dates: start: 20221101
  3. INFLECTRA [Suspect]
     Active Substance: INFLIXIMAB-DYYB
     Dosage: 10 MG/KG, EVERY 8 WEEKS
     Route: 042
     Dates: start: 20230321
  4. INFLECTRA [Suspect]
     Active Substance: INFLIXIMAB-DYYB
     Dosage: 10 MG/KG, EVERY 8 WEEKS
     Route: 042
     Dates: start: 20230516
  5. INFLECTRA [Suspect]
     Active Substance: INFLIXIMAB-DYYB
     Dosage: 540 MG, AFTER 9 WEEKS (PRESCRIBED 10 MG/KG, EVERY 8 WEEKS)
     Route: 042
     Dates: start: 20230721
  6. INFLECTRA [Suspect]
     Active Substance: INFLIXIMAB-DYYB
     Dosage: 540 MG, AFTER 9 WEEKS (PRESCRIBED 10 MG/KG, EVERY 8 WEEKS)
     Route: 042
     Dates: start: 20230721
  7. INFLECTRA [Suspect]
     Active Substance: INFLIXIMAB-DYYB
     Dosage: 540 MG, AFTER 9 WEEKS (PRESCRIBED 10 MG/KG, EVERY 8 WEEKS)
     Route: 042
     Dates: start: 20230915
  8. INFLECTRA [Suspect]
     Active Substance: INFLIXIMAB-DYYB
     Dosage: 580 MG, AFTER 7 WEEKS AND 4 DAYS (PRESCRIBED EVERY 8 WEEK)
     Route: 042
     Dates: start: 20231110
  9. INFLECTRA [Suspect]
     Active Substance: INFLIXIMAB-DYYB
     Dosage: 10 MG/KG, EVERY 8 WEEKS
     Route: 042
     Dates: start: 20240105
  10. INFLECTRA [Suspect]
     Active Substance: INFLIXIMAB-DYYB
     Dosage: 10 MG/KG, EVERY 8 WEEKS (DOSAGE ADMINISTERED: 560MG (10MG/KG), 8 WEEKS)
     Route: 042
     Dates: start: 20240304
  11. INFLECTRA [Suspect]
     Active Substance: INFLIXIMAB-DYYB
     Dosage: 10 MG/KG, EVERY 8 WEEKS (DOSAGE ADMINISTERED: 560MG (10MG/KG), 8 WEEKS)
     Route: 042
     Dates: start: 20240426
  12. INFLECTRA [Suspect]
     Active Substance: INFLIXIMAB-DYYB
     Dosage: 560 MG, AFTER 8 WEEKS AND 4 DAYS (10 MG/KG, EVERY 8 WEEKS)
     Route: 042
     Dates: start: 20240625
  13. INFLECTRA [Suspect]
     Active Substance: INFLIXIMAB-DYYB
     Dosage: 550 MG, AFTER 8 WEEKS (10MG/KG, EVERY 8 WEEKS)
     Route: 042
     Dates: start: 20240820
  14. BENADRYL [Concomitant]
     Active Substance: DIPHENHYDRAMINE HYDROCHLORIDE
     Indication: Premedication
     Dosage: UNK, PRE INFUSION
     Dates: start: 20230516, end: 20230516
  15. CORTISONE [Concomitant]
     Active Substance: CORTISONE
     Indication: Premedication
     Dosage: UNK, PRE INFUSION
     Dates: start: 20230516, end: 20230516
  16. IMURAN [Concomitant]
     Active Substance: AZATHIOPRINE
     Dosage: 1 DF, (50/100 MG)
     Route: 065
     Dates: start: 2002
  17. TYLENOL [Concomitant]
     Active Substance: ACETAMINOPHEN
     Indication: Premedication
     Dosage: UNK, PRE INFUSION
     Dates: start: 20230516, end: 20230516

REACTIONS (17)
  - Arthritis [Unknown]
  - Back pain [Recovered/Resolved]
  - Drug level below therapeutic [Unknown]
  - Drug level increased [Not Recovered/Not Resolved]
  - Discomfort [Recovered/Resolved]
  - Pain in extremity [Not Recovered/Not Resolved]
  - Poor venous access [Unknown]
  - Vein rupture [Not Recovered/Not Resolved]
  - Dyspepsia [Recovered/Resolved]
  - Fatigue [Unknown]
  - Arthralgia [Recovered/Resolved]
  - Rash pruritic [Not Recovered/Not Resolved]
  - Myalgia [Not Recovered/Not Resolved]
  - Rash [Recovered/Resolved]
  - Condition aggravated [Not Recovered/Not Resolved]
  - Abdominal pain upper [Not Recovered/Not Resolved]
  - Inappropriate schedule of product administration [Unknown]

NARRATIVE: CASE EVENT DATE: 20221101
